FAERS Safety Report 12277057 (Version 1)
Quarter: 2016Q2

REPORT INFORMATION
  Report Type: Spontaneous
  Country: US (occurrence: None)
  Receive Date: 20160415
  Receipt Date: 20160415
  Transmission Date: 20160815
  Serious: No
  Sender: FDA-Public Use
  Company Number: None

PATIENT
  Age: 43 Year
  Sex: Female
  Weight: 71.22 kg

DRUGS (6)
  1. RIZOTRIPTAN/MAX SALTS [Concomitant]
  2. KLONOPIN [Concomitant]
     Active Substance: CLONAZEPAM
  3. VIIBRYD [Suspect]
     Active Substance: VILAZODONE HYDROCHLORIDE
     Indication: DEPRESSION
     Route: 048
     Dates: start: 20160308
  4. VIIBRYD [Suspect]
     Active Substance: VILAZODONE HYDROCHLORIDE
     Indication: ANXIETY
     Route: 048
     Dates: start: 20160308
  5. SYNTHROID [Concomitant]
     Active Substance: LEVOTHYROXINE SODIUM
  6. EXECDRIN TENSION HEADACHE [Concomitant]

REACTIONS (30)
  - Migraine [None]
  - Peripheral swelling [None]
  - Arthralgia [None]
  - Neck pain [None]
  - Dyspnoea [None]
  - Memory impairment [None]
  - Nausea [None]
  - Muscle spasms [None]
  - Chest discomfort [None]
  - Eye pruritus [None]
  - Dyskinesia [None]
  - Heart rate increased [None]
  - Pain [None]
  - Restlessness [None]
  - Abdominal pain upper [None]
  - Dizziness [None]
  - Abdominal pain [None]
  - Pruritus generalised [None]
  - Muscle twitching [None]
  - Self esteem decreased [None]
  - Fatigue [None]
  - Paraesthesia [None]
  - Insomnia [None]
  - Musculoskeletal pain [None]
  - Disorientation [None]
  - Menopausal symptoms [None]
  - Dry eye [None]
  - Chest pain [None]
  - Abnormal dreams [None]
  - Confusional state [None]

NARRATIVE: CASE EVENT DATE: 20160401
